FAERS Safety Report 13089346 (Version 1)
Quarter: 2017Q1

REPORT INFORMATION
  Report Type: Spontaneous
  Country: FR (occurrence: FR)
  Receive Date: 20170105
  Receipt Date: 20170105
  Transmission Date: 20170428
  Serious: Yes (Hospitalization)
  Sender: FDA-Public Use
  Company Number: FR-PFIZER INC-2017000260

PATIENT
  Age: 14 Year
  Sex: Female

DRUGS (1)
  1. GENOTONORM [Suspect]
     Active Substance: SOMATROPIN
     Dosage: 1.7 MG DAILY, 6/7 DAYS
     Route: 058
     Dates: start: 20030408, end: 20161116

REACTIONS (2)
  - Balance disorder [Not Recovered/Not Resolved]
  - Vertigo [Not Recovered/Not Resolved]

NARRATIVE: CASE EVENT DATE: 20161106
